FAERS Safety Report 5104223-8 (Version None)
Quarter: 2006Q3

REPORT INFORMATION
  Report Type: 
  Country: None (occurrence: None)
  Receive Date: 20060911
  Receipt Date: 20060831
  Transmission Date: 20061208
  Serious: Yes (Hospitalization)
  Sender: FDA-Public Use
  Company Number: GXKR2006BR05482

PATIENT
  Sex: Male

DRUGS (1)
  1. ATENOLOL [Suspect]
     Indication: CARDIAC FAILURE
     Dosage: 50 MG, BID, ORAL
     Route: 048

REACTIONS (1)
  - MYOCARDIAL INFARCTION [None]
